FAERS Safety Report 5469310-3 (Version None)
Quarter: 2007Q3

REPORT INFORMATION
  Report Type: 
  Country: None (occurrence: None)
  Receive Date: 20070924
  Receipt Date: 20070906
  Transmission Date: 20080115
  Serious: Yes (Other)
  Sender: FDA-Public Use
  Company Number: 100#08#2007-03431

PATIENT
  Age: 37 Year
  Sex: Male

DRUGS (10)
  1. METHOTREXATE [Suspect]
     Indication: ANKYLOSING SPONDYLITIS
     Dosage: 7.5 - 10 MG/ WEEK;
  2. METHOTREXATE [Suspect]
     Indication: ARTHRITIS
     Dosage: 7.5 - 10 MG/ WEEK;
  3. METHOTREXATE [Suspect]
     Indication: BACK PAIN
     Dosage: 7.5 - 10 MG/ WEEK;
  4. INFLIXIMAB (INFLIXIMAB) (INFLIXIMAB) [Suspect]
     Indication: ANKYLOSING SPONDYLITIS
     Dosage: A TOTAL OF 21 DOSES OF 3 MG/KG AND 9 DOSES OF 5 MG/KG
  5. INFLIXIMAB (INFLIXIMAB) (INFLIXIMAB) [Suspect]
     Indication: ARTHRITIS
     Dosage: A TOTAL OF 21 DOSES OF 3 MG/KG AND 9 DOSES OF 5 MG/KG
  6. INFLIXIMAB (INFLIXIMAB) (INFLIXIMAB) [Suspect]
     Indication: BACK PAIN
     Dosage: A TOTAL OF 21 DOSES OF 3 MG/KG AND 9 DOSES OF 5 MG/KG
  7. PREDNISONE [Suspect]
     Indication: ARTHRITIS
     Dosage: 10-20 MG;
  8. PREDNISONE [Suspect]
     Indication: BACK PAIN
     Dosage: 10-20 MG;
  9. PREDNISONE [Suspect]
     Indication: SPONDYLITIS
     Dosage: 10-20 MG;
  10. NSAID (NSAID'S) (NSAID) [Concomitant]

REACTIONS (6)
  - ANAEMIA [None]
  - GASTRIC ULCER [None]
  - GASTROINTESTINAL HAEMORRHAGE [None]
  - HUMAN HERPESVIRUS 8 INFECTION [None]
  - KAPOSI'S SARCOMA [None]
  - SMALL INTESTINE ULCER [None]
